FAERS Safety Report 7467917-5 (Version None)
Quarter: 2011Q2

REPORT INFORMATION
  Report Type: 
  Country: None (occurrence: None)
  Receive Date: 20110509
  Receipt Date: 20110505
  Transmission Date: 20111010
  Serious: Yes (Other)
  Sender: FDA-Public Use
  Company Number: US-B.I. PHARMACEUTICALS,INC./RIDGEFIELD-2011-BP-08360BP

PATIENT
  Sex: Male

DRUGS (10)
  1. CIALIS [Concomitant]
     Indication: ERECTILE DYSFUNCTION
  2. LYRICA [Concomitant]
     Indication: FIBROMYALGIA
  3. DILTIAZEM [Concomitant]
     Indication: HYPERTENSION
  4. FLONAISE [Concomitant]
     Indication: MULTIPLE ALLERGIES
  5. ANDROGEL [Concomitant]
     Indication: BLOOD TESTOSTERONE DECREASED
  6. PRAVASTATIN [Concomitant]
  7. CLARITIN [Concomitant]
     Indication: MULTIPLE ALLERGIES
  8. FLOMAX [Concomitant]
     Indication: URINARY RETENTION
     Dosage: 0.4 MG
  9. PRADAXA [Suspect]
     Indication: ATRIAL FIBRILLATION
     Dosage: 150 MG
     Route: 048
     Dates: start: 20110304
  10. PROVACHOL [Concomitant]
     Indication: HYPERCHOLESTEROLAEMIA

REACTIONS (12)
  - ASTHENIA [None]
  - DIZZINESS [None]
  - SUDDEN ONSET OF SLEEP [None]
  - CONTUSION [None]
  - BLOOD GLUCOSE INCREASED [None]
  - WHEEZING [None]
  - DYSURIA [None]
  - CARDIAC FAILURE CONGESTIVE [None]
  - OEDEMA PERIPHERAL [None]
  - DYSPNOEA [None]
  - SWOLLEN TONGUE [None]
  - WEIGHT INCREASED [None]
